FAERS Safety Report 18273612 (Version 1)
Quarter: 2020Q3

REPORT INFORMATION
  Report Type: Spontaneous
  Country: DE (occurrence: DE)
  Receive Date: 20200916
  Receipt Date: 20200916
  Transmission Date: 20201103
  Serious: Yes (Hospitalization)
  Sender: FDA-Public Use
  Company Number: DE-ASTRAZENECA-2020SF13358

PATIENT
  Age: 92 Year
  Sex: Female
  Weight: 60 kg

DRUGS (23)
  1. PIPAMPERON [Concomitant]
     Active Substance: PIPAMPERONE HYDROCHLORIDE
  2. BISOPROLOL [Concomitant]
     Active Substance: BISOPROLOL
     Indication: HYPERTENSION
     Dosage: 5 MG BID, AS NEEDED IN THE EVENING ALSO ONLY 2.5 MG
     Route: 048
  3. LORAZEPAM. [Concomitant]
     Active Substance: LORAZEPAM
     Indication: SLEEP DISORDER
     Dosage: UNK, AS NEEDED
  4. HCT [Concomitant]
     Active Substance: HYDROCHLOROTHIAZIDE
     Indication: OLIGURIA
  5. GABAPENTIN. [Concomitant]
     Active Substance: GABAPENTIN
     Dates: start: 20200615, end: 20200619
  6. ESOMEPRAZOL [Suspect]
     Active Substance: ESOMEPRAZOLE
     Indication: GASTRITIS
     Route: 048
     Dates: start: 20200607, end: 20200824
  7. TAVOR [Concomitant]
     Indication: SLEEP DISORDER
     Dosage: UNK, AS NEEDED
  8. AMLODIPIN [Concomitant]
     Active Substance: AMLODIPINE BESYLATE
     Indication: HYPERTENSION
     Route: 048
     Dates: start: 20200825
  9. SIMVASTATIN. [Concomitant]
     Active Substance: SIMVASTATIN
     Route: 048
  10. VOMEX [Concomitant]
     Active Substance: DIMENHYDRINATE
     Indication: NAUSEA
  11. APIXABAN [Concomitant]
     Active Substance: APIXABAN
     Dates: start: 20200820
  12. MIRTAZAPIN [Concomitant]
     Active Substance: MIRTAZAPINE
     Dosage: 15.0MG UNKNOWN
  13. GABAPENTIN. [Concomitant]
     Active Substance: GABAPENTIN
     Dates: start: 20200626
  14. TELMISARTAN. [Concomitant]
     Active Substance: TELMISARTAN
     Indication: HYPERTENSION
     Route: 048
  15. APIXABAN [Concomitant]
     Active Substance: APIXABAN
  16. LACTULOSE. [Concomitant]
     Active Substance: LACTULOSE
     Indication: CONSTIPATION
     Dates: start: 2018
  17. ASPIRIN. [Concomitant]
     Active Substance: ASPIRIN
     Indication: ARTERIOSCLEROSIS
     Route: 048
     Dates: end: 20200114
  18. PANTOPRAZOL [Suspect]
     Active Substance: PANTOPRAZOLE SODIUM
     Indication: GASTRITIS
     Route: 048
     Dates: start: 201807
  19. PANTOPRAZOL [Suspect]
     Active Substance: PANTOPRAZOLE SODIUM
     Indication: GASTRITIS
     Dosage: IN BETWEEN, THE DOSE WAS REDUCED TO 20 MG
     Route: 065
     Dates: end: 20200606
  20. LANTUS [Concomitant]
     Active Substance: INSULIN GLARGINE
     Dosage: 8 IU DAILY, 1?0?0 REGULAR INTAKE IN THE MORNING SINCE 2018/ 2019
     Dates: start: 2018
  21. L?THYROXIN [Concomitant]
     Active Substance: LEVOTHYROXINE SODIUM
     Indication: HYPERTHYROIDISM
     Dates: start: 2007
  22. TORASEMID [Concomitant]
     Active Substance: TORSEMIDE
  23. RISPERIDON [Concomitant]
     Active Substance: RISPERIDONE

REACTIONS (8)
  - Sleep disorder [Unknown]
  - Restlessness [Unknown]
  - Condition aggravated [Unknown]
  - Nausea [Unknown]
  - Headache [Unknown]
  - Anxiety [Unknown]
  - Blood creatinine increased [Unknown]
  - Heart rate increased [Unknown]

NARRATIVE: CASE EVENT DATE: 201807
